FAERS Safety Report 23956939 (Version 1)
Quarter: 2024Q2

REPORT INFORMATION
  Report Type: Spontaneous
  Country: US (occurrence: US)
  Receive Date: 20240610
  Receipt Date: 20240610
  Transmission Date: 20240715
  Serious: No
  Sender: FDA-Public Use
  Company Number: US-PFIZER INC-202400187142

PATIENT
  Sex: Female

DRUGS (2)
  1. TUKYSA [Suspect]
     Active Substance: TUCATINIB
     Dosage: 2 PILLS THE 1ST DAY
  2. TUKYSA [Suspect]
     Active Substance: TUCATINIB
     Dosage: 2 UNK

REACTIONS (1)
  - Nasopharyngitis [Unknown]
